FAERS Safety Report 7580097-0 (Version None)
Quarter: 2011Q2

REPORT INFORMATION
  Report Type: 
  Country: None (occurrence: None)
  Receive Date: 20110629
  Receipt Date: 20110624
  Transmission Date: 20111010
  Serious: Yes (Death, Other)
  Sender: FDA-Public Use
  Company Number: GB-ELI_LILLY_AND_COMPANY-GB201106007395

PATIENT
  Age: 37 Year

DRUGS (4)
  1. IBUPROFEN [Concomitant]
  2. METHADONE HCL [Concomitant]
     Dosage: UNK
  3. 9-TETRAHYDROCANNABINOL [Concomitant]
  4. OLANZAPINE [Suspect]

REACTIONS (3)
  - TOXICITY TO VARIOUS AGENTS [None]
  - ARRHYTHMIA [None]
  - ACCIDENTAL OVERDOSE [None]
